FAERS Safety Report 20469104 (Version 1)
Quarter: 2022Q1

REPORT INFORMATION
  Report Type: Report from Study
  Country: US (occurrence: US)
  Receive Date: 20220214
  Receipt Date: 20220214
  Transmission Date: 20220423
  Serious: No
  Sender: FDA-Public Use
  Company Number: US-PHARMACOVIGILANCE-US-KAD-21-00050

PATIENT
  Sex: Male

DRUGS (3)
  1. REZUROCK [Suspect]
     Active Substance: BELUMOSUDIL
     Indication: Graft versus host disease
     Dosage: 200 MILLIGRAMS, ONCE DAILY, ORALLY WITH LUNCH
     Route: 048
     Dates: start: 20210925
  2. REZUROCK [Suspect]
     Active Substance: BELUMOSUDIL
     Dosage: 200 UNK
     Dates: start: 20210925
  3. PEPTO-BISMOL [Concomitant]
     Active Substance: BISMUTH SUBSALICYLATE
     Indication: Gastric disorder
     Dosage: UNK

REACTIONS (1)
  - Abdominal discomfort [Recovering/Resolving]
